FAERS Safety Report 16725360 (Version 1)
Quarter: 2019Q3

REPORT INFORMATION
  Report Type: Spontaneous
  Country: IT (occurrence: IT)
  Receive Date: 20190821
  Receipt Date: 20190821
  Transmission Date: 20191005
  Serious: Yes (Hospitalization)
  Sender: FDA-Public Use
  Company Number: IT-TEVA-2019-IT-1093955

PATIENT
  Age: 82 Year
  Sex: Female

DRUGS (10)
  1. ACETYLSALICYLIC ACID [Concomitant]
     Active Substance: ASPIRIN
  2. BISOPROLOL FUMARATE. [Suspect]
     Active Substance: BISOPROLOL FUMARATE
     Indication: ACUTE CORONARY SYNDROME
     Route: 048
  3. CORLENTOR 7.5 MG FILM-COATED TABLETS [Suspect]
     Active Substance: IVABRADINE HYDROCHLORIDE
     Indication: ACUTE CORONARY SYNDROME
     Route: 048
  4. TORVAST [Concomitant]
     Active Substance: ATORVASTATIN
  5. LUVION [CANRENOIC ACID] [Suspect]
     Active Substance: CANRENOIC ACID
     Indication: ACUTE CORONARY SYNDROME
     Route: 048
  6. KARVEZIDE [Concomitant]
     Active Substance: HYDROCHLOROTHIAZIDE\IRBESARTAN
  7. PANTORC [Concomitant]
     Active Substance: PANTOPRAZOLE SODIUM
  8. TICAGRELOR. [Concomitant]
     Active Substance: TICAGRELOR
  9. MINIAS [Concomitant]
     Active Substance: LORMETAZEPAM
  10. LASIX [Suspect]
     Active Substance: FUROSEMIDE
     Indication: ACUTE CORONARY SYNDROME
     Route: 048

REACTIONS (3)
  - Bradycardia [Recovered/Resolved]
  - Hyponatraemia [Recovered/Resolved]
  - Syncope [Recovered/Resolved]

NARRATIVE: CASE EVENT DATE: 20190701
